FAERS Safety Report 5573055-9 (Version None)
Quarter: 2007Q4

REPORT INFORMATION
  Report Type: 
  Country: None (occurrence: None)
  Receive Date: 20071224
  Receipt Date: 20071219
  Transmission Date: 20080405
  Serious: Yes (Death)
  Sender: FDA-Public Use
  Company Number: GB-ROCHE-537993

PATIENT
  Age: 53 Year
  Sex: Female

DRUGS (1)
  1. XENICAL [Suspect]
     Indication: OBESITY
     Route: 065
     Dates: start: 20070801

REACTIONS (2)
  - DEATH [None]
  - DIZZINESS [None]
